FAERS Safety Report 8190550-7 (Version None)
Quarter: 2012Q1

REPORT INFORMATION
  Report Type: 
  Country: None (occurrence: None)
  Receive Date: 20120307
  Receipt Date: 20120224
  Transmission Date: 20120608
  Serious: Yes (Death)
  Sender: FDA-Public Use
  Company Number: BR-ROCHE-1043527

PATIENT
  Age: 55 Year
  Sex: Female

DRUGS (3)
  1. ALIMTA [Concomitant]
     Indication: LUNG ADENOCARCINOMA
     Dates: start: 20090321
  2. AVASTIN [Suspect]
     Indication: LUNG ADENOCARCINOMA
     Dates: start: 20090321
  3. CARBOPLATIN [Concomitant]
     Indication: LUNG ADENOCARCINOMA
     Dates: start: 20090321

REACTIONS (1)
  - NEOPLASM MALIGNANT [None]
